FAERS Safety Report 5906703-1 (Version None)
Quarter: 2008Q3

REPORT INFORMATION
  Report Type: 
  Country: None (occurrence: None)
  Receive Date: 20080930
  Receipt Date: 20080917
  Transmission Date: 20090109
  Serious: Yes (Death)
  Sender: FDA-Public Use
  Company Number: 2008S1000304

PATIENT
  Age: 61 Year
  Sex: Male
  Weight: 60 kg

DRUGS (5)
  1. CUBICIN [Suspect]
     Indication: CATHETER BACTERAEMIA
     Dosage: 8 MG/KG; Q24H;
     Dates: start: 20080819, end: 20080825
  2. CUBICIN [Suspect]
     Indication: ENTEROCOCCAL BACTERAEMIA
     Dosage: 8 MG/KG; Q24H;
     Dates: start: 20080819, end: 20080825
  3. METHYLPREDNISOLONE [Concomitant]
  4. VANCOMYCIN HYDROCHLORIDE [Concomitant]
  5. LINEZOLID [Concomitant]

REACTIONS (2)
  - MEDICAL DEVICE REMOVAL [None]
  - SUDDEN DEATH [None]
